FAERS Safety Report 9248927 (Version 1)
Quarter: 2013Q1

REPORT INFORMATION
  Report Type: Spontaneous
  Country: US (occurrence: None)
  Receive Date: 20130305
  Receipt Date: 20130305
  Transmission Date: 20140127
  Serious: Yes (Other)
  Sender: FDA-Public Use
  Company Number: 163-21880-12091578 (0)

PATIENT
  Age: 69 Year
  Sex: Female

DRUGS (31)
  1. REVLIMID [Suspect]
     Indication: PLASMA CELL MYELOMA
     Dosage: 5 MG, 21 IN 28 D, PO
     Route: 048
     Dates: start: 20100330, end: 20120912
  2. ETOPOSIDE(ETOPOSI?DE) [Concomitant]
  3. CYCLOPHOSPHAMIDE(-CYCLOPHOSPHAMIDE) [Concomitant]
  4. FLUCONAZOLE(FLUCONAZOLE) [Concomitant]
  5. ACYCLOVIR(ACICLOVIR) [Concomitant]
  6. GRANISETRON(GRANISETRON) [Concomitant]
  7. LEVOFLOXACIN(LEVOFLOXACIN) [Concomitant]
  8. DOXORUBICIN(DOXORUBICIN) [Concomitant]
  9. EMEND(APREPITANT) [Concomitant]
  10. ALKERAN(MELPHALAN) [Concomitant]
  11. LOMOTIL(LOMOTIL) [Concomitant]
  12. AGGRENOX(ASASANTIN) [Concomitant]
  13. FIBERCON(POLYCARBOPHIL CALCIUM) [Concomitant]
  14. VAGIFEM(ESTRADIOL) [Concomitant]
  15. TAMIFLU(OSELTAMIVIR) [Concomitant]
  16. METOPROLOL TARTRATE(METOPROLOL TARTRATE) [Concomitant]
  17. OMEPRAZOLE(OMEPRAZOLE) [Concomitant]
  18. DEXAMETHASONE [Concomitant]
  19. LEVOTHYROXINE(LEVOTHYROXINE) [Concomitant]
  20. FUROSEMIDE(FUROSEMIDE) [Concomitant]
  21. VITACIRC-B(VITA CIRCLE) [Concomitant]
  22. CHERATUSSIN AC(CHERATUSSIN AC) [Concomitant]
  23. PANTOPRAZOLE(PANTOPRAZOLE) [Concomitant]
  24. CISPLATIN(CISPLATIN) [Concomitant]
  25. LOVENOX(HEPARIN-FRACTION, SODIUM SALT) [Concomitant]
  26. NEUPOGEN(FILGRASTIM) [Concomitant]
  27. VELCADE(BORTEZOMIB) [Concomitant]
  28. ONDANSETRON(ONDANSETRON) [Concomitant]
  29. IMODIUM [Concomitant]
  30. SENNA(SENNA) [Concomitant]
  31. DULCOLAX(BISACODYL) [Concomitant]

REACTIONS (2)
  - Rash maculo-papular [None]
  - Skin exfoliation [None]
